FAERS Safety Report 7325771-6 (Version None)
Quarter: 2011Q1

REPORT INFORMATION
  Report Type: 
  Country: None (occurrence: None)
  Receive Date: 20110302
  Receipt Date: 20110204
  Transmission Date: 20110831
  Serious: No
  Sender: FDA-Public Use
  Company Number: US-BAYER-2011-014443

PATIENT
  Sex: Male
  Weight: 66 kg

DRUGS (3)
  1. ALEVE (CAPLET) [Suspect]
     Indication: PRODUCT USED FOR UNKNOWN INDICATION
     Dosage: UNK
     Route: 048
  2. ADDERALL 10 [Concomitant]
  3. TUMS [CALCIUM CARBONATE] [Concomitant]

REACTIONS (1)
  - DYSPEPSIA [None]
